FAERS Safety Report 6612211-5 (Version None)
Quarter: 2010Q1

REPORT INFORMATION
  Report Type: 
  Country: None (occurrence: None)
  Receive Date: 20100303
  Receipt Date: 20100224
  Transmission Date: 20100710
  Serious: Yes (Other)
  Sender: FDA-Public Use
  Company Number: JP-EISAI INC.-E2090-01075-SPO-JP

PATIENT
  Sex: Female

DRUGS (3)
  1. EXCEGRAN [Suspect]
     Indication: DRUG USE FOR UNKNOWN INDICATION
     Dosage: UNKNOWN
  2. TEGRETOL [Concomitant]
  3. GABAPEN [Concomitant]

REACTIONS (4)
  - ASTHENIA [None]
  - DRUG EXPOSURE DURING PREGNANCY [None]
  - METABOLIC ACIDOSIS [None]
  - RESPIRATORY DISORDER [None]
